FAERS Safety Report 16755086 (Version 1)
Quarter: 2019Q3

REPORT INFORMATION
  Report Type: Spontaneous
  Country: US (occurrence: US)
  Receive Date: 20190711
  Receipt Date: 20190711
  Transmission Date: 20191005
  Serious: No
  Sender: FDA-Public Use
  Company Number: None

PATIENT
  Age: 47 Year
  Sex: Female

DRUGS (1)
  1. BENLYSTA [Suspect]
     Active Substance: BELIMUMAB
     Dates: start: 201902

REACTIONS (6)
  - Nephrolithiasis [None]
  - Therapy cessation [None]
  - Urine output decreased [None]
  - Urinary tract infection [None]
  - Dysuria [None]
  - Pollakiuria [None]

NARRATIVE: CASE EVENT DATE: 20190711
